FAERS Safety Report 7471859-9 (Version None)
Quarter: 2011Q2

REPORT INFORMATION
  Report Type: 
  Country: None (occurrence: None)
  Receive Date: 20110511
  Receipt Date: 20100605
  Transmission Date: 20111010
  Serious: No
  Sender: FDA-Public Use
  Company Number: A0865786A

PATIENT

DRUGS (1)
  1. TYKERB [Suspect]
     Route: 065

REACTIONS (3)
  - EPISTAXIS [None]
  - RASH [None]
  - DIARRHOEA [None]
